FAERS Safety Report 6032700-4 (Version None)
Quarter: 2009Q1

REPORT INFORMATION
  Report Type: 
  Country: None (occurrence: None)
  Receive Date: 20090107
  Receipt Date: 20090107
  Transmission Date: 20090719
  Serious: Yes (Death)
  Sender: FDA-Public Use
  Company Number: None

PATIENT
  Age: 29 Year
  Sex: Female
  Weight: 60.3284 kg

DRUGS (9)
  1. SORAFENIB 200 MG [Suspect]
     Indication: PULMONARY ARTERIAL HYPERTENSION
     Dosage: ONE DAILY
     Dates: start: 20071024, end: 20080826
  2. LASIX [Concomitant]
  3. POTASSIUM CHLORIDE [Concomitant]
  4. ALDACTONE [Concomitant]
  5. LEXAPRO [Concomitant]
  6. SILDENAFIL CITRATE [Concomitant]
  7. IMODIUM [Concomitant]
  8. COUMADIN [Concomitant]
  9. FLOLAN [Concomitant]

REACTIONS (4)
  - CARDIOGENIC SHOCK [None]
  - HYPOTENSION [None]
  - SYNCOPE [None]
  - VOMITING [None]
